FAERS Safety Report 12086486 (Version 1)
Quarter: 2016Q1

REPORT INFORMATION
  Report Type: Spontaneous
  Country: US (occurrence: US)
  Receive Date: 20160217
  Receipt Date: 20160217
  Transmission Date: 20160526
  Serious: No
  Sender: FDA-Public Use
  Company Number: US-ALLERGAN-1500659US

PATIENT
  Age: 84 Year
  Sex: Female

DRUGS (3)
  1. REFRESH P.M. [Concomitant]
     Active Substance: MINERAL OIL\PETROLATUM
     Indication: DRY EYE
     Dosage: UNK, QPM
     Route: 047
  2. RESTASIS [Suspect]
     Active Substance: CYCLOSPORINE
     Indication: DRY EYE
     Dosage: 1 GTT, BID
     Route: 047
     Dates: start: 201405
  3. REFRESH OPTIVE SENSITIVE [Concomitant]
     Active Substance: CARBOXYMETHYLCELLULOSE SODIUM\GLYCERIN
     Indication: DRY EYE
     Dosage: Q2HR STARTING AT 6:30AM
     Route: 047

REACTIONS (2)
  - Ocular hyperaemia [Unknown]
  - Photophobia [Unknown]

NARRATIVE: CASE EVENT DATE: 201405
